FAERS Safety Report 10040794 (Version 1)
Quarter: 2014Q1

REPORT INFORMATION
  Report Type: Spontaneous
  Country: DE (occurrence: DE)
  Receive Date: 20140327
  Receipt Date: 20140327
  Transmission Date: 20141002
  Serious: Yes (Other)
  Sender: FDA-Public Use
  Company Number: PHHY2014DE034285

PATIENT
  Age: 55 Year
  Sex: Male

DRUGS (3)
  1. ACETYLSALICYLIC ACID [Suspect]
     Indication: ANTIPLATELET THERAPY
     Dosage: 100 MG, DAILY
  2. PRASUGREL [Suspect]
     Indication: ANTIPLATELET THERAPY
     Dosage: 10 MG, DAILY
  3. TACROLIMUS [Concomitant]

REACTIONS (6)
  - Haemorrhage [Recovered/Resolved]
  - Haematoma [Recovered/Resolved]
  - Oropharyngeal pain [Unknown]
  - Local swelling [Unknown]
  - Oesophageal compression [Unknown]
  - Dysphagia [Unknown]
